FAERS Safety Report 10149802 (Version 1)
Quarter: 2014Q2

REPORT INFORMATION
  Report Type: Spontaneous
  Country: FR (occurrence: FR)
  Receive Date: 20140502
  Receipt Date: 20140502
  Transmission Date: 20141212
  Serious: Yes (Life-Threatening, Hospitalization)
  Sender: FDA-Public Use
  Company Number: FR-ASTRAZENECA-2014SE29791

PATIENT
  Age: 27790 Day
  Sex: Male

DRUGS (2)
  1. TENORMINE [Suspect]
     Route: 048
     Dates: start: 20140413, end: 20140413
  2. PLAVIX [Suspect]
     Route: 048
     Dates: start: 20140413, end: 20140413

REACTIONS (3)
  - Suicidal behaviour [Unknown]
  - Somnolence [Recovered/Resolved]
  - Bradycardia [Recovered/Resolved]
